FAERS Safety Report 14648576 (Version 1)
Quarter: 2018Q1

REPORT INFORMATION
  Report Type: Spontaneous
  Country: US (occurrence: US)
  Receive Date: 20180316
  Receipt Date: 20180316
  Transmission Date: 20180509
  Serious: Yes (Hospitalization, Other)
  Sender: FDA-Public Use
  Company Number: US-ENDO PHARMACEUTICALS INC-2018-021119

PATIENT
  Age: 37 Year
  Sex: Female

DRUGS (1)
  1. OPANA ER [Suspect]
     Active Substance: OXYMORPHONE HYDROCHLORIDE
     Indication: PRODUCT USED FOR UNKNOWN INDICATION
     Dosage: UNK MG, UNKNOWN
     Route: 042

REACTIONS (7)
  - Acute kidney injury [Unknown]
  - Thrombotic microangiopathy [Unknown]
  - Chronic kidney disease [Unknown]
  - Hepatitis C antibody positive [Unknown]
  - Intentional product misuse [Unknown]
  - Cardiac failure congestive [Unknown]
  - Drug abuse [Unknown]
